FAERS Safety Report 6410860-0 (Version None)
Quarter: 2009Q4

REPORT INFORMATION
  Report Type: 
  Country: None (occurrence: None)
  Receive Date: 20091022
  Receipt Date: 20091013
  Transmission Date: 20100525
  Serious: Yes (Other)
  Sender: FDA-Public Use
  Company Number: PHHY2009CN44810

PATIENT
  Age: 78 Year
  Sex: Male

DRUGS (2)
  1. SANDOSTATIN [Suspect]
     Indication: HEPATIC NEOPLASM MALIGNANT
     Dosage: 12 DF, QD, (50UG/H DAILY)
     Route: 041
     Dates: start: 20091012, end: 20091013
  2. SANDOSTATIN [Suspect]
     Indication: HEPATIC CIRRHOSIS

REACTIONS (1)
  - ANURIA [None]
